FAERS Safety Report 11872570 (Version 1)
Quarter: 2015Q4

REPORT INFORMATION
  Report Type: Spontaneous
  Country: None (occurrence: US)
  Receive Date: 20151228
  Receipt Date: 20151228
  Transmission Date: 20160305
  Serious: No
  Sender: FDA-Public Use
  Company Number: US-MATRIXX INITIATIVES, INC.-1045932

PATIENT
  Age: 58 Year
  Sex: Female
  Weight: 101.82 kg

DRUGS (2)
  1. ZICAM COLD REMEDY RAPIDMELTS [Suspect]
     Active Substance: ZINC ACETATE ANHYDROUS\ZINC GLUCONATE
     Indication: NASOPHARYNGITIS
     Route: 048
     Dates: start: 20151214, end: 20151216
  2. METFORMIN [Concomitant]
     Active Substance: METFORMIN HYDROCHLORIDE

REACTIONS (1)
  - Ageusia [Recovered/Resolved]
